FAERS Safety Report 6142336-2 (Version None)
Quarter: 2009Q2

REPORT INFORMATION
  Report Type: 
  Country: None (occurrence: None)
  Receive Date: 20090403
  Receipt Date: 20090331
  Transmission Date: 20091009
  Serious: Yes (Death)
  Sender: FDA-Public Use
  Company Number: PH-JNJFOC-20090305477

PATIENT
  Sex: Female

DRUGS (3)
  1. DORIBAX [Suspect]
     Indication: PNEUMONIA
     Route: 041
  2. ERTAPENEM [Concomitant]
     Indication: PNEUMONIA
  3. PIPERACILLIN AND TAZOBACTAM [Concomitant]
     Indication: PNEUMONIA

REACTIONS (1)
  - SEPTIC SHOCK [None]
